FAERS Safety Report 12206289 (Version 4)
Quarter: 2016Q2

REPORT INFORMATION
  Report Type: Spontaneous
  Country: US (occurrence: US)
  Receive Date: 20160324
  Receipt Date: 20160601
  Transmission Date: 20160815
  Serious: No
  Sender: FDA-Public Use
  Company Number: US-009507513-1603USA008983

PATIENT
  Sex: Female
  Weight: 99.77 kg

DRUGS (2)
  1. NEXPLANON [Suspect]
     Active Substance: ETONOGESTREL
     Dosage: 68 MG, LEFT ARM
     Route: 059
     Dates: start: 20140914, end: 20160315
  2. NEXPLANON [Suspect]
     Active Substance: ETONOGESTREL
     Dosage: UNK
     Route: 059
     Dates: start: 20160315

REACTIONS (3)
  - Device breakage [Recovered/Resolved]
  - Adverse event [Unknown]
  - Implant site pain [Unknown]
